FAERS Safety Report 6545909-8 (Version None)
Quarter: 2010Q1

REPORT INFORMATION
  Report Type: 
  Country: None (occurrence: None)
  Receive Date: 20100121
  Receipt Date: 20100112
  Transmission Date: 20100710
  Serious: Yes (Hospitalization)
  Sender: FDA-Public Use
  Company Number: NL-ROCHE-678995

PATIENT
  Sex: Male

DRUGS (6)
  1. BEVACIZUMAB [Suspect]
     Route: 042
     Dates: start: 20081008
  2. BEVACIZUMAB [Suspect]
     Dosage: CYCLE 2
     Route: 042
     Dates: start: 20081029
  3. CAPECITABINE [Suspect]
     Dosage: CYCLE 2 DOSE SCHEDULED ON 29 OCTOBER 2009, WAS NOT RECEIVED
     Route: 048
     Dates: start: 20081008
  4. OXALIPLATIN [Suspect]
     Route: 042
     Dates: start: 20081008
  5. OXALIPLATIN [Suspect]
     Dosage: CYCLE 2
     Route: 042
     Dates: start: 20081029
  6. DIAZEPAM [Concomitant]

REACTIONS (7)
  - DYSPNOEA [None]
  - GENERAL SYMPTOM [None]
  - HEADACHE [None]
  - HYPOTENSION [None]
  - NAUSEA [None]
  - PYREXIA [None]
  - TREMOR [None]
